FAERS Safety Report 8300492 (Version 2)
Quarter: 2012Q4

REPORT INFORMATION
  Report Type: 
  Country: US (occurrence: US)
  Receive Date: 20111219
  Receipt Date: 20121102
  Transmission Date: 20130627
  Serious: Yes (Other)
  Sender: FDA-Public Use
  Company Number: US-ASTRAZENECA-2010SE28051

PATIENT
  Age: 82 Year
  Sex: Male
  Weight: 108.4 kg

DRUGS (33)
  1. NEXIUM [Suspect]
     Route: 048
  2. CRESTOR [Suspect]
     Route: 048
     Dates: start: 20091228, end: 20101223
  3. CRESTOR [Suspect]
     Route: 048
     Dates: start: 20100526, end: 20100526
  4. CRESTOR [Suspect]
     Route: 048
     Dates: start: 20100526, end: 20100611
  5. CRESTOR [Suspect]
     Route: 048
     Dates: start: 20091228, end: 20100526
  6. CRESTOR [Suspect]
     Route: 048
     Dates: start: 20100101, end: 201005
  7. CRESTOR [Suspect]
     Route: 048
     Dates: start: 201005
  8. CRESTOR [Suspect]
     Route: 048
     Dates: start: 20100611, end: 20110427
  9. CRESTOR [Suspect]
     Route: 048
  10. CRESTOR [Suspect]
     Route: 048
     Dates: end: 20110608
  11. CRESTOR [Suspect]
     Route: 048
     Dates: end: 20110427
  12. CRESTOR [Suspect]
     Route: 048
  13. RANEXA [Concomitant]
     Route: 048
     Dates: start: 20091228, end: 20101223
  14. ISOSORBIDE MONONITRATE [Concomitant]
     Route: 048
  15. ALLEGRA [Concomitant]
  16. ALLOPURINOL [Concomitant]
  17. ASPIRIN EC [Concomitant]
  18. CITRUCEL [Concomitant]
     Dosage: AS NEEDED
  19. COREG CR [Concomitant]
  20. DIOVAN [Concomitant]
  21. FINASTERIDE [Concomitant]
  22. IMDUR [Concomitant]
  23. INSPRA [Concomitant]
  24. LASIX [Concomitant]
     Dosage: 20 mg  as directed three times TTS
  25. NIASPAN [Concomitant]
     Dates: start: 20070608, end: 20100903
  26. NIASPAN [Concomitant]
     Dates: start: 20100903
  27. PLAVIX [Concomitant]
  28. VALIUM [Concomitant]
  29. VITAMIN D [Concomitant]
     Dosage: 5000 U once monthly
  30. ZETIA [Concomitant]
     Dates: end: 20110429
  31. TYLENOL [Concomitant]
     Indication: DISCOMFORT
     Dosage: 650 MG EVERY 4 HOURS AS NEEDED
  32. LIPITOR [Concomitant]
     Dates: start: 20070918, end: 20071121
  33. VYTORIN [Concomitant]
     Dosage: 10-40
     Route: 048

REACTIONS (17)
  - Atrioventricular block complete [Unknown]
  - Aortic aneurysm [Unknown]
  - Ischaemic cardiomyopathy [Unknown]
  - Cerebrovascular accident [Unknown]
  - Cardiac disorder [Unknown]
  - Hypertension [Unknown]
  - Hyperlipidaemia [Unknown]
  - Blood cholesterol increased [Unknown]
  - Low density lipoprotein increased [Unknown]
  - Coronary artery disease [Unknown]
  - Angina pectoris [Unknown]
  - Carotid artery disease [Unknown]
  - Hypercholesterolaemia [Unknown]
  - Cardiac failure chronic [Unknown]
  - Dehydration [Unknown]
  - Hiatus hernia [Unknown]
  - Sick sinus syndrome [Unknown]
